FAERS Safety Report 10275956 (Version 1)
Quarter: 2014Q3

REPORT INFORMATION
  Report Type: Spontaneous
  Country: IT (occurrence: IT)
  Receive Date: 20140703
  Receipt Date: 20140703
  Transmission Date: 20150326
  Serious: Yes (Death, Other)
  Sender: FDA-Public Use
  Company Number: IT-CELGENEUS-083-50794-14064029

PATIENT
  Age: 75 Year
  Sex: Female

DRUGS (1)
  1. VIDAZA [Suspect]
     Active Substance: AZACITIDINE
     Indication: ACUTE MYELOID LEUKAEMIA
     Route: 065
     Dates: start: 20110207, end: 20111227

REACTIONS (9)
  - Thrombocytopenia [Unknown]
  - Influenza like illness [Unknown]
  - Cerebral haemorrhage [Fatal]
  - Erythroblastosis [Unknown]
  - Klebsiella infection [Unknown]
  - Bone marrow failure [Unknown]
  - Gastroenteritis [Unknown]
  - White blood cell count decreased [Unknown]
  - Anaemia [Unknown]

NARRATIVE: CASE EVENT DATE: 201204
